FAERS Safety Report 21459435 (Version 1)
Quarter: 2022Q4

REPORT INFORMATION
  Report Type: Spontaneous
  Country: FR (occurrence: FR)
  Receive Date: 20221014
  Receipt Date: 20221014
  Transmission Date: 20230113
  Serious: Yes (Hospitalization, Other)
  Sender: FDA-Public Use
  Company Number: FR-NOVARTISPH-NVSC2022FR230820

PATIENT
  Age: 28 Year
  Sex: Male
  Weight: 103.8 kg

DRUGS (18)
  1. TACROLIMUS [Suspect]
     Active Substance: TACROLIMUS
     Indication: Renal transplant
     Dosage: 5 MG, QD (TOTAL DAILY DOSE)
     Route: 065
     Dates: start: 20151216
  2. TACROLIMUS [Suspect]
     Active Substance: TACROLIMUS
     Dosage: 6 MG, QD (TOTAL DAILY DOSE)
     Route: 065
     Dates: start: 20151231
  3. TACROLIMUS [Suspect]
     Active Substance: TACROLIMUS
     Dosage: 5.5 MG, QD (TOTAL DAILY DOSE)
     Route: 065
     Dates: start: 20160127
  4. TACROLIMUS [Suspect]
     Active Substance: TACROLIMUS
     Dosage: 6 MG, QD (TOTAL DAILY DOSE)
     Route: 065
     Dates: start: 20160528
  5. TACROLIMUS [Suspect]
     Active Substance: TACROLIMUS
     Dosage: 5.5 MG, QD (TOTAL DAILY DOSE)
     Route: 065
     Dates: start: 20160630
  6. TACROLIMUS [Suspect]
     Active Substance: TACROLIMUS
     Dosage: 5 MG, QD
     Route: 048
     Dates: start: 20180301, end: 20180502
  7. TACROLIMUS [Suspect]
     Active Substance: TACROLIMUS
     Dosage: 3 MG, QD (TOTAL DAILY DOSE)
     Route: 065
     Dates: start: 20180503
  8. TACROLIMUS [Suspect]
     Active Substance: TACROLIMUS
     Dosage: 4 MG, QD (TOTAL DAILY DOSE)
     Route: 065
     Dates: start: 20180519
  9. TACROLIMUS [Suspect]
     Active Substance: TACROLIMUS
     Dosage: 5 MG, QD
     Route: 048
     Dates: start: 20180711, end: 20190215
  10. TACROLIMUS [Suspect]
     Active Substance: TACROLIMUS
     Dosage: 4 MG, QD (TOTAL DAILY DOSE)
     Route: 065
     Dates: start: 20190216
  11. TACROLIMUS [Suspect]
     Active Substance: TACROLIMUS
     Dosage: 5 MG, QD (TOTAL DAILY DOSE)
     Route: 065
     Dates: start: 20190731
  12. TACROLIMUS [Suspect]
     Active Substance: TACROLIMUS
     Dosage: 3 MG, QD (TOTAL DAILY DOSE)
     Route: 065
     Dates: start: 20200609
  13. TACROLIMUS [Suspect]
     Active Substance: TACROLIMUS
     Dosage: 2 MG, QD (TOTAL DAILY DOSE)
     Route: 065
     Dates: start: 20200625
  14. TACROLIMUS [Suspect]
     Active Substance: TACROLIMUS
     Dosage: 4 MG, QD (TOTAL DAILY DOSE)
     Route: 065
     Dates: start: 20200707
  15. PREDNISONE [Concomitant]
     Active Substance: PREDNISONE
     Indication: Immunosuppression
     Dosage: UNK (5 UNKNOWN UNITS, TOTAL DAILY DOSE)
     Route: 065
     Dates: start: 20151216
  16. CELLCEPT [Concomitant]
     Active Substance: MYCOPHENOLATE MOFETIL
     Indication: Immunosuppression
     Dosage: UNK (2000 UNKNOWN UNITS, TOTAL DAILY DOSE)
     Route: 065
     Dates: start: 20150728, end: 20180228
  17. CELLCEPT [Concomitant]
     Active Substance: MYCOPHENOLATE MOFETIL
     Dosage: UNK (2000 UNKNOWN UNITS, TOTAL DAILY DOSE)
     Route: 065
     Dates: start: 20181107
  18. AZATHIOPRINE SODIUM [Concomitant]
     Active Substance: AZATHIOPRINE SODIUM
     Indication: Immunosuppression
     Dosage: UNK (100 UNKNOWN UNITS, TOTAL DAILY DOSE)
     Route: 065
     Dates: start: 20180301, end: 20181106

REACTIONS (6)
  - Renal graft infection [Recovered/Resolved]
  - Escherichia bacteraemia [Recovered/Resolved]
  - Renal graft infection [Recovered/Resolved]
  - Escherichia pyelonephritis [Recovered/Resolved]
  - Enterococcal bacteraemia [Recovered/Resolved]
  - Bacterial pyelonephritis [Recovered/Resolved]

NARRATIVE: CASE EVENT DATE: 20180429
